FAERS Safety Report 8802645 (Version 5)
Quarter: 2013Q1

REPORT INFORMATION
  Report Type: Spontaneous
  Country: FR (occurrence: FR)
  Receive Date: 20120921
  Receipt Date: 20130116
  Transmission Date: 20140127
  Serious: Yes (Hospitalization, Other)
  Sender: FDA-Public Use
  Company Number: FR-ROCHE-1114865

PATIENT
  Age: 46 Year
  Sex: Male

DRUGS (4)
  1. PEGASYS [Suspect]
     Indication: HEPATITIS C
     Route: 058
     Dates: start: 20120529, end: 20121109
  2. RIBAVIRIN [Suspect]
     Indication: HEPATITIS C
     Route: 065
     Dates: start: 20120529, end: 20121109
  3. INCIVO [Concomitant]
     Indication: HEPATITIS C
     Route: 058
     Dates: start: 20120529, end: 20120903
  4. ZYRTEC [Concomitant]

REACTIONS (12)
  - Lung disorder [Recovered/Resolved]
  - Anaemia [Recovering/Resolving]
  - Eye pain [Not Recovered/Not Resolved]
  - Tachycardia [Unknown]
  - Autonomic nervous system imbalance [Not Recovered/Not Resolved]
  - Thrombocytopenia [Not Recovered/Not Resolved]
  - Eyelid oedema [Recovered/Resolved]
  - Anal pruritus [Not Recovered/Not Resolved]
  - Haemorrhoids [Not Recovered/Not Resolved]
  - Hypertension [Recovered/Resolved]
  - Muscle spasms [Not Recovered/Not Resolved]
  - Erythema [Not Recovered/Not Resolved]
